FAERS Safety Report 6187730-9 (Version None)
Quarter: 2009Q2

REPORT INFORMATION
  Report Type: 
  Country: None (occurrence: None)
  Receive Date: 20090513
  Receipt Date: 20090430
  Transmission Date: 20091009
  Serious: Yes (Disabling)
  Sender: FDA-Public Use
  Company Number: AU-PFIZER INC-2009184884

PATIENT
  Age: 90 Year

DRUGS (10)
  1. VIBRAMYCIN [Suspect]
     Indication: SINUS CONGESTION
     Dosage: 100 MG, 1X/DAY
     Route: 048
     Dates: start: 20090226, end: 20090303
  2. AMOXIL [Concomitant]
     Dosage: UNK
     Dates: start: 20080701
  3. ATACAND [Concomitant]
     Indication: BLOOD PRESSURE
     Dosage: 8 MG, 1X/DAY
     Route: 048
  4. SERC [Concomitant]
     Indication: VERTIGO
     Dosage: 16 MG, 1X/DAY
     Route: 048
  5. VITAMIN D [Concomitant]
     Dosage: 1000 IU, 1X/DAY
     Route: 048
  6. VITAMIN E [Concomitant]
     Dosage: UNK
     Route: 048
  7. OROXINE [Concomitant]
     Dosage: 50 UG, 1X/DAY
     Route: 048
  8. LIPEX [Concomitant]
     Indication: BLOOD CHOLESTEROL
     Dosage: 40 MG, 1X/DAY
     Route: 048
  9. CLOPIDOGREL [Concomitant]
     Dosage: 75 MG, 1X/DAY
  10. LOSEC [Concomitant]
     Dosage: 20 MG, 1X/DAY

REACTIONS (10)
  - AMNESIA [None]
  - BALANCE DISORDER [None]
  - CONFUSIONAL STATE [None]
  - ERYTHEMA [None]
  - GLOSSODYNIA [None]
  - MALAISE [None]
  - NAUSEA [None]
  - RASH [None]
  - TINNITUS [None]
  - TREMOR [None]
